FAERS Safety Report 7656214-0 (Version None)
Quarter: 2011Q3

REPORT INFORMATION
  Report Type: 
  Country: None (occurrence: None)
  Receive Date: 20110801
  Receipt Date: 20110719
  Transmission Date: 20111222
  Serious: Yes (Hospitalization)
  Sender: FDA-Public Use
  Company Number: FK201101430

PATIENT
  Age: 71 Year
  Sex: Female

DRUGS (2)
  1. CISPLATIN [Suspect]
     Indication: OVARIAN CANCER METASTATIC
  2. CYCLOPHOSPHAMIDE [Suspect]
     Indication: OVARIAN CANCER METASTATIC

REACTIONS (5)
  - KOUNIS SYNDROME [None]
  - CHEST PAIN [None]
  - HYPOTENSION [None]
  - COLD SWEAT [None]
  - TACHYCARDIA [None]
